FAERS Safety Report 8049091-X (Version None)
Quarter: 2012Q1

REPORT INFORMATION
  Report Type: 
  Country: None (occurrence: None)
  Receive Date: 20120117
  Receipt Date: 20120113
  Transmission Date: 20120608
  Serious: No
  Sender: FDA-Public Use
  Company Number: US-PFIZER INC-2011290189

PATIENT
  Sex: Female
  Weight: 80 kg

DRUGS (20)
  1. MAGNESIUM [Concomitant]
     Dosage: UNK
  2. NYSTATIN [Concomitant]
     Dosage: UNK
  3. CELECOXIB [Concomitant]
     Dosage: UNK
  4. COMPAZINE [Concomitant]
     Dosage: UNK
  5. DIAZEPAM [Concomitant]
     Dosage: UNK
  6. DOCUSATE [Concomitant]
     Dosage: UNK
  7. PROMETHAZINE [Concomitant]
     Dosage: UNK
  8. LIDOCAINE [Concomitant]
     Dosage: UNK
  9. ZOLOFT [Concomitant]
     Dosage: UNK
  10. LYRICA [Suspect]
     Indication: PAIN
     Dosage: 100 MG, 3X/DAY
     Route: 048
     Dates: start: 20111123
  11. CLINDAMYCIN [Concomitant]
     Dosage: UNK
  12. LOPERAMIDE [Concomitant]
     Dosage: UNK
  13. HYDROXYZINE [Concomitant]
     Dosage: UNK
  14. PRAZOSIN [Concomitant]
     Dosage: UNK
  15. AMBIEN [Concomitant]
     Dosage: UNK
  16. SINGULAIR [Concomitant]
     Dosage: UNK
  17. ONDANSETRON [Concomitant]
     Dosage: UNK
  18. TOPAMAX [Concomitant]
     Dosage: UNK
  19. ACETAMINOPHEN [Concomitant]
     Dosage: UNK
  20. PANTOPRAZOLE [Concomitant]
     Dosage: UNK

REACTIONS (1)
  - OEDEMA PERIPHERAL [None]
